FAERS Safety Report 5942243-1 (Version None)
Quarter: 2008Q4

REPORT INFORMATION
  Report Type: 
  Country: None (occurrence: None)
  Receive Date: 20081031
  Receipt Date: 20081028
  Transmission Date: 20090506
  Serious: Yes (Other)
  Sender: FDA-Public Use
  Company Number: SPV1-2008-02211

PATIENT
  Age: 12 Year
  Sex: Male
  Weight: 63 kg

DRUGS (5)
  1. VYVANSE [Suspect]
     Indication: ATTENTION DEFICIT/HYPERACTIVITY DISORDER
     Dosage: ORAL; 70 MG, 1X/DAY:QD, ORAL
     Route: 048
     Dates: start: 20080310, end: 20080101
  2. VYVANSE [Suspect]
     Indication: ATTENTION DEFICIT/HYPERACTIVITY DISORDER
     Dosage: ORAL; 70 MG, 1X/DAY:QD, ORAL
     Route: 048
     Dates: start: 20080101, end: 20081004
  3. MAXAIR [Concomitant]
  4. CLARITIN /00413701/ (GLICLAZIDE) [Concomitant]
  5. ZYRTEC [Concomitant]

REACTIONS (4)
  - DEPRESSED MOOD [None]
  - EMOTIONAL DISTRESS [None]
  - PARANOIA [None]
  - SUICIDAL IDEATION [None]
